FAERS Safety Report 5482472-7 (Version None)
Quarter: 2007Q4

REPORT INFORMATION
  Report Type: 
  Country: None (occurrence: None)
  Receive Date: 20071011
  Receipt Date: 20071002
  Transmission Date: 20080405
  Serious: Yes (Other)
  Sender: FDA-Public Use
  Company Number: GB-ASTRAZENECA-2007GB01319

PATIENT
  Age: 64 Year
  Sex: Female
  Weight: 79 kg

DRUGS (8)
  1. LISINOPRIL [Suspect]
     Route: 048
     Dates: start: 20070117, end: 20070425
  2. LISINOPRIL [Suspect]
     Route: 048
  3. ALENDRONATE SODIUM [Concomitant]
     Route: 048
     Dates: start: 20040826
  4. CO-PROXAMOL [Concomitant]
     Route: 048
     Dates: start: 20000111
  5. GAVISCON [Concomitant]
     Route: 048
     Dates: start: 20000713
  6. KETOPROFEN [Concomitant]
     Route: 048
     Dates: start: 20000406
  7. OMEPRAZOLE [Concomitant]
     Route: 048
     Dates: start: 20040121
  8. PREDNISOLONE [Concomitant]
     Route: 048
     Dates: start: 20040105

REACTIONS (1)
  - RHEUMATOID ARTHRITIS [None]
